FAERS Safety Report 10157330 (Version 1)
Quarter: 2014Q2

REPORT INFORMATION
  Report Type: Spontaneous
  Country: CA (occurrence: CA)
  Receive Date: 20140507
  Receipt Date: 20140507
  Transmission Date: 20141212
  Serious: Yes (Other)
  Sender: FDA-Public Use
  Company Number: CA-ROCHE-1395243

PATIENT
  Sex: Female

DRUGS (5)
  1. XOLAIR [Suspect]
     Indication: ASTHMA
     Route: 058
     Dates: start: 20140212
  2. SINGULAIR [Concomitant]
  3. VENTOLIN [Concomitant]
  4. ONBREZ [Concomitant]
  5. ALVESCO [Concomitant]

REACTIONS (12)
  - Irritability [Not Recovered/Not Resolved]
  - Dysphagia [Unknown]
  - Skin plaque [Not Recovered/Not Resolved]
  - Dry throat [Recovered/Resolved]
  - Dyspnoea [Not Recovered/Not Resolved]
  - Dizziness [Unknown]
  - Fatigue [Not Recovered/Not Resolved]
  - Dizziness [Unknown]
  - Headache [Recovered/Resolved]
  - Urticaria [Recovered/Resolved]
  - Pruritus [Recovered/Resolved]
  - Rash [Recovered/Resolved]
